FAERS Safety Report 16714288 (Version 1)
Quarter: 2019Q3

REPORT INFORMATION
  Report Type: Spontaneous
  Country: IT (occurrence: IT)
  Receive Date: 20190819
  Receipt Date: 20190819
  Transmission Date: 20191004
  Serious: Yes (Hospitalization)
  Sender: FDA-Public Use
  Company Number: IT-TEVA-2019-IT-1093604

PATIENT
  Age: 60 Year
  Sex: Female

DRUGS (2)
  1. BISOPROLOL [Suspect]
     Active Substance: BISOPROLOL
     Indication: HYPERTENSION
     Dosage: 2.5 MILLIGRAM DAILY;
     Route: 048
  2. NITROGLYCERIN. [Suspect]
     Active Substance: NITROGLYCERIN
     Route: 042

REACTIONS (7)
  - Pulmonary hypertension [Recovered/Resolved]
  - Pulmonary oedema [Recovered/Resolved]
  - Left ventricle outflow tract obstruction [Recovering/Resolving]
  - Mitral valve incompetence [Recovered/Resolved]
  - Cardiogenic shock [Recovered/Resolved]
  - Stress cardiomyopathy [Recovering/Resolving]
  - Systolic anterior motion of mitral valve [Recovered/Resolved]
